FAERS Safety Report 4639207-7 (Version None)
Quarter: 2005Q2

REPORT INFORMATION
  Report Type: 
  Country: None (occurrence: None)
  Receive Date: 20050418
  Receipt Date: 20050401
  Transmission Date: 20051028
  Serious: Yes (Other)
  Sender: FDA-Public Use
  Company Number: MEDI-0003130

PATIENT
  Age: 16 Month
  Sex: Female

DRUGS (6)
  1. SYNAGIS [Suspect]
     Indication: ANTIVIRAL PROPHYLAXIS
     Dosage: SEE IMAGE
     Route: 030
     Dates: start: 20021222, end: 20030324
  2. SYNAGIS [Suspect]
     Indication: ANTIVIRAL PROPHYLAXIS
     Dosage: SEE IMAGE
     Route: 030
     Dates: start: 20021222
  3. SYNAGIS [Suspect]
     Indication: ANTIVIRAL PROPHYLAXIS
     Dosage: SEE IMAGE
     Route: 030
     Dates: start: 20030130
  4. SYNAGIS [Suspect]
     Indication: ANTIVIRAL PROPHYLAXIS
     Dosage: SEE IMAGE
     Route: 030
     Dates: start: 20030217
  5. FERRIC PYROPHOSPHATE (FERRIC PYROPHOSPHATE) [Concomitant]
  6. ALFACALCIDOL (ALFACALCIDOL) [Concomitant]

REACTIONS (1)
  - ASTHMA [None]
